FAERS Safety Report 10261558 (Version 15)
Quarter: 2017Q4

REPORT INFORMATION
  Report Type: Report from Study
  Country: BE (occurrence: BE)
  Receive Date: 20140626
  Receipt Date: 20171210
  Transmission Date: 20180320
  Serious: Yes (Hospitalization, Other)
  Sender: FDA-Public Use
  Company Number: PHHY2014BE074651

PATIENT
  Age: 36 Year
  Sex: Female

DRUGS (4)
  1. GILENYA [Suspect]
     Active Substance: FINGOLIMOD HYDROCHLORIDE
     Dosage: UNK, QD
     Route: 048
     Dates: start: 20141122, end: 20141130
  2. GILENYA [Suspect]
     Active Substance: FINGOLIMOD HYDROCHLORIDE
     Indication: MULTIPLE SCLEROSIS
     Dosage: 0.5 MG, QD
     Route: 048
     Dates: start: 20140516, end: 20141118
  3. GILENYA [Suspect]
     Active Substance: FINGOLIMOD HYDROCHLORIDE
     Dosage: UNK, QD
     Route: 048
     Dates: start: 20141201
  4. TOPAMAX [Concomitant]
     Active Substance: TOPIRAMATE
     Indication: MIGRAINE
     Dosage: 95 MG, UNK
     Route: 065
     Dates: end: 2013

REACTIONS (25)
  - Body temperature increased [Recovered/Resolved]
  - Lymphopenia [Recovered/Resolved]
  - Alanine aminotransferase increased [Unknown]
  - Pyrexia [Unknown]
  - Hyperthermia [Recovered/Resolved]
  - Urinary tract infection [Recovered/Resolved]
  - Pharyngitis [Recovered/Resolved]
  - Back pain [Recovered/Resolved]
  - Hyperthermia [Recovered/Resolved]
  - Blood cholesterol increased [Unknown]
  - Body temperature increased [Recovered/Resolved]
  - Pain in extremity [Unknown]
  - Urinary tract infection [Recovered/Resolved]
  - C-reactive protein increased [Recovered/Resolved]
  - Lymphopenia [Recovered/Resolved]
  - Lymphopenia [Recovered/Resolved]
  - Viral infection [Unknown]
  - Body temperature increased [Recovered/Resolved]
  - Low density lipoprotein increased [Unknown]
  - Erythema [Unknown]
  - Gastrointestinal infection [Recovered/Resolved]
  - Meningism [Recovered/Resolved]
  - Urinary tract infection [Recovered/Resolved]
  - Gamma-glutamyltransferase increased [Unknown]
  - Oropharyngeal pain [Recovered/Resolved]

NARRATIVE: CASE EVENT DATE: 20140530
